FAERS Safety Report 6258293-4 (Version None)
Quarter: 2009Q3

REPORT INFORMATION
  Report Type: 
  Country: None (occurrence: None)
  Receive Date: 20090707
  Receipt Date: 20090630
  Transmission Date: 20100115
  Serious: Yes (Other)
  Sender: FDA-Public Use
  Company Number: US-ASTRAZENECA-2009UW13613

PATIENT
  Age: 11 Year
  Sex: Male

DRUGS (3)
  1. SEROQUEL XR [Suspect]
     Indication: BIPOLAR DISORDER
     Dosage: 300 MG
     Route: 048
     Dates: start: 20090409, end: 20090610
  2. ADDERALL 10 [Concomitant]
     Indication: ATTENTION DEFICIT/HYPERACTIVITY DISORDER
     Route: 048
     Dates: start: 20081218
  3. CLONIDINE [Concomitant]
     Dosage: ONE IN MORNING, TWO IN EVENING
     Route: 048
     Dates: start: 20071017

REACTIONS (1)
  - HYPERTENSION [None]
